FAERS Safety Report 10478718 (Version 1)
Quarter: 2014Q3

REPORT INFORMATION
  Report Type: Spontaneous
  Country: BR (occurrence: BR)
  Receive Date: 20140926
  Receipt Date: 20140926
  Transmission Date: 20150326
  Serious: Yes (Other)
  Sender: FDA-Public Use
  Company Number: BR-JNJFOC-20140917681

PATIENT
  Age: 40 Year
  Sex: Female

DRUGS (1)
  1. REMICADE [Suspect]
     Active Substance: INFLIXIMAB
     Indication: CROHN^S DISEASE
     Route: 042
     Dates: start: 20140819

REACTIONS (9)
  - Arthralgia [Not Recovered/Not Resolved]
  - Intervertebral disc disorder [Unknown]
  - Muscle twitching [Not Recovered/Not Resolved]
  - Mass [Unknown]
  - Pain [Unknown]
  - Nephrolithiasis [Unknown]
  - Dermatitis allergic [Unknown]
  - Musculoskeletal stiffness [Not Recovered/Not Resolved]
  - Renal pain [Not Recovered/Not Resolved]

NARRATIVE: CASE EVENT DATE: 2014
